FAERS Safety Report 9464023 (Version 1)
Quarter: 2013Q3

REPORT INFORMATION
  Report Type: Spontaneous
  Country: US (occurrence: US)
  Receive Date: 20130819
  Receipt Date: 20130819
  Transmission Date: 20140515
  Serious: No
  Sender: FDA-Public Use
  Company Number: US-BRISTOL-MYERS SQUIBB COMPANY-18982835

PATIENT
  Age: 56 Year
  Sex: Male
  Weight: 68.03 kg

DRUGS (4)
  1. REYATAZ [Suspect]
     Indication: HIV TEST
     Dosage: 1 DF: 1 PILL
  2. TRUVADA [Suspect]
     Indication: HIV TEST
  3. NORVIR [Suspect]
     Indication: HIV TEST
  4. LYRICA [Suspect]
     Indication: NEURALGIA
     Dosage: INCREASED TO 150MG IN MORNING AND 75 MG IN THE NIGHT

REACTIONS (3)
  - Hypoaesthesia [Not Recovered/Not Resolved]
  - T-lymphocyte count increased [Not Recovered/Not Resolved]
  - Blood cholesterol increased [Not Recovered/Not Resolved]
